FAERS Safety Report 19406596 (Version 2)
Quarter: 2021Q3

REPORT INFORMATION
  Report Type: Spontaneous
  Country: US (occurrence: US)
  Receive Date: 20210611
  Receipt Date: 20210723
  Transmission Date: 20211014
  Serious: Yes (Other)
  Sender: FDA-Public Use
  Company Number: US-ASTRAZENECA-2021A500612

PATIENT
  Sex: Female

DRUGS (1)
  1. GENERIC SYMBICORT [Suspect]
     Active Substance: BUDESONIDE\FORMOTEROL FUMARATE DIHYDRATE
     Dosage: 160/4.5??G/D,UNKNOWN UNKNOWN
     Route: 055

REACTIONS (9)
  - Spinal disorder [Unknown]
  - Pain [Not Recovered/Not Resolved]
  - Visual impairment [Not Recovered/Not Resolved]
  - Dyspnoea [Unknown]
  - Nervous system disorder [Unknown]
  - Cerebrovascular accident [Not Recovered/Not Resolved]
  - Ill-defined disorder [Unknown]
  - Device malfunction [Unknown]
  - Device issue [Unknown]
